FAERS Safety Report 14888653 (Version 2)
Quarter: 2019Q1

REPORT INFORMATION
  Report Type: Report from Study
  Country: US (occurrence: US)
  Receive Date: 20180514
  Receipt Date: 20190122
  Transmission Date: 20190417
  Serious: Yes (Death, Hospitalization)
  Sender: FDA-Public Use
  Company Number: US-ROCHE-2121229

PATIENT
  Age: 69 Year
  Sex: Female
  Weight: 55 kg

DRUGS (12)
  1. CC-122 [Suspect]
     Active Substance: AVADOMIDE
     Indication: DIFFUSE LARGE B-CELL LYMPHOMA
     Dosage: DAY 1 TO 5, 8-12
     Route: 048
     Dates: start: 20180404, end: 20180408
  2. RITUXIMAB. [Suspect]
     Active Substance: RITUXIMAB
     Indication: DIFFUSE LARGE B-CELL LYMPHOMA
     Route: 042
     Dates: start: 20180404, end: 20180404
  3. ACTOCORTINA [Concomitant]
     Active Substance: HYDROCORTISONE SODIUM PHOSPHATE
     Indication: ERYTHEMA
     Route: 042
     Dates: start: 20180404, end: 20180404
  4. PREDNISONE. [Suspect]
     Active Substance: PREDNISONE
     Indication: DIFFUSE LARGE B-CELL LYMPHOMA
     Dosage: DAYS 1-5
     Route: 048
     Dates: start: 20180404, end: 20180408
  5. SEPTRIN [Concomitant]
     Active Substance: SULFAMETHOXAZOLE\TRIMETHOPRIM
     Indication: INFECTION PROPHYLAXIS
     Route: 048
     Dates: start: 20180405
  6. DOXORUBICIN [Suspect]
     Active Substance: DOXORUBICIN
     Indication: DIFFUSE LARGE B-CELL LYMPHOMA
     Dosage: DAY 1
     Route: 042
     Dates: start: 20180404, end: 20180404
  7. ONDANSETRON [Concomitant]
     Active Substance: ONDANSETRON
     Indication: PROPHYLAXIS OF NAUSEA AND VOMITING
     Route: 042
     Dates: start: 20180404, end: 20180406
  8. VINCRISTINE [Suspect]
     Active Substance: VINCRISTINE
     Indication: DIFFUSE LARGE B-CELL LYMPHOMA
     Route: 042
     Dates: start: 20180404, end: 20180404
  9. ZOLPIDEM [Concomitant]
     Active Substance: ZOLPIDEM\ZOLPIDEM TARTRATE
     Indication: PROPHYLAXIS
     Route: 048
     Dates: start: 20180323
  10. NEULASTA [Concomitant]
     Active Substance: PEGFILGRASTIM
     Route: 065
  11. CYCLOPHOSPHAMIDE. [Suspect]
     Active Substance: CYCLOPHOSPHAMIDE
     Indication: DIFFUSE LARGE B-CELL LYMPHOMA
     Dosage: DAY 1
     Route: 042
     Dates: start: 20180404, end: 20180404
  12. ALLOPURINOL. [Concomitant]
     Active Substance: ALLOPURINOL
     Indication: PROPHYLAXIS
     Route: 048
     Dates: start: 20180405

REACTIONS (3)
  - Pneumonia [Not Recovered/Not Resolved]
  - Intestinal obstruction [Unknown]
  - Respiratory failure [Fatal]

NARRATIVE: CASE EVENT DATE: 20180410
